FAERS Safety Report 11643965 (Version 1)
Quarter: 2015Q4

REPORT INFORMATION
  Report Type: Spontaneous
  Country: US (occurrence: None)
  Receive Date: 20151019
  Receipt Date: 20151019
  Transmission Date: 20160304
  Serious: Yes (Disabling)
  Sender: FDA-Public Use
  Company Number: None

PATIENT
  Age: 65 Year
  Sex: Female
  Weight: 61.24 kg

DRUGS (3)
  1. CIPROFLOXACIN. [Suspect]
     Active Substance: CIPROFLOXACIN
     Indication: URINARY TRACT INFECTION
     Route: 048
     Dates: start: 20150624
  2. SIM VISITATION [Concomitant]
  3. VIT. D SUPPLEMENT [Concomitant]

REACTIONS (12)
  - Muscle spasms [None]
  - Gait disturbance [None]
  - Tremor [None]
  - Vertigo [None]
  - Palpitations [None]
  - Panic reaction [None]
  - Anxiety [None]
  - Neuropathy peripheral [None]
  - Dizziness [None]
  - Gastric disorder [None]
  - Headache [None]
  - Arthropathy [None]

NARRATIVE: CASE EVENT DATE: 20150623
